FAERS Safety Report 8111812-5 (Version None)
Quarter: 2012Q1

REPORT INFORMATION
  Report Type: 
  Country: None (occurrence: None)
  Receive Date: 20120203
  Receipt Date: 20120201
  Transmission Date: 20120608
  Serious: Yes (Hospitalization, Other)
  Sender: FDA-Public Use
  Company Number: CH-PFIZER INC-2012027036

PATIENT
  Age: 85 Year
  Sex: Female

DRUGS (6)
  1. METOPROLOL TARTRATE AND HYDROCHLOROTHIAZIDE [Concomitant]
     Dosage: 25 MG, 1X/DAY
  2. ZYVOX [Suspect]
     Indication: LIVER ABSCESS
     Dosage: 600 MG, 2X/DAY
     Route: 048
     Dates: start: 20111222, end: 20120112
  3. ASPIRIN [Suspect]
     Indication: ISCHAEMIC CARDIOMYOPATHY
     Dosage: 100 MG, 1X/DAY
     Dates: end: 20120113
  4. TORASEMIDE [Concomitant]
     Dosage: 10 MG, 1X/DAY
     Dates: end: 20120101
  5. AMLODIPINE [Concomitant]
     Dosage: 10 MG, 1X/DAY
     Route: 048
  6. CIPROFLOXACIN HYDROCHLORIDE [Suspect]
     Indication: LIVER ABSCESS
     Dosage: 500 MG, 2X/DAY
     Route: 048
     Dates: start: 20111222, end: 20120112

REACTIONS (4)
  - THROMBOCYTOPENIA [None]
  - LEUKOPENIA [None]
  - ANAEMIA [None]
  - MELAENA [None]
